FAERS Safety Report 14821047 (Version 1)
Quarter: 2018Q2

REPORT INFORMATION
  Report Type: Spontaneous
  Country: US (occurrence: US)
  Receive Date: 20180427
  Receipt Date: 20180427
  Transmission Date: 20180711
  Serious: Yes (Other)
  Sender: FDA-Public Use
  Company Number: US-APOTEX-2018AP011547

PATIENT
  Age: 16 Year
  Sex: Male

DRUGS (5)
  1. DIVALPROEX [Suspect]
     Active Substance: DIVALPROEX SODIUM
     Indication: EPILEPSY
     Route: 065
  2. METHOTREXATE. [Concomitant]
     Active Substance: METHOTREXATE
     Indication: PROGRESSIVE FACIAL HEMIATROPHY
     Route: 065
  3. OXCARBAZEPINE. [Suspect]
     Active Substance: OXCARBAZEPINE
     Indication: IDIOPATHIC GENERALISED EPILEPSY
     Route: 048
  4. CARBAMAZEPINE. [Suspect]
     Active Substance: CARBAMAZEPINE
     Indication: EPILEPSY
     Route: 065
  5. FOLIC ACID. [Concomitant]
     Active Substance: FOLIC ACID
     Indication: PROGRESSIVE FACIAL HEMIATROPHY
     Route: 065

REACTIONS (4)
  - Drug level decreased [Unknown]
  - Drug eruption [Unknown]
  - Treatment noncompliance [Unknown]
  - Drug ineffective [Unknown]
